FAERS Safety Report 22659917 (Version 1)
Quarter: 2023Q2

REPORT INFORMATION
  Report Type: Spontaneous
  Country: GB (occurrence: GB)
  Receive Date: 20230630
  Receipt Date: 20230630
  Transmission Date: 20230722
  Serious: Yes (Other)
  Sender: FDA-Public Use
  Company Number: GB-MHRA-ADR 28007168

PATIENT
  Sex: Male

DRUGS (8)
  1. LENALIDOMIDE [Suspect]
     Active Substance: LENALIDOMIDE
     Indication: Diffuse large B-cell lymphoma
     Dates: start: 20200116, end: 20200618
  2. LENALIDOMIDE [Suspect]
     Active Substance: LENALIDOMIDE
     Dates: start: 20200714, end: 20220310
  3. POLIVY [Suspect]
     Active Substance: POLATUZUMAB VEDOTIN-PIIQ
     Indication: Diffuse large B-cell lymphoma
     Dates: start: 20220420, end: 20220818
  4. RITUXIMAB [Suspect]
     Active Substance: RITUXIMAB
     Indication: Diffuse large B-cell lymphoma
     Dates: start: 20090101, end: 20090501
  5. RITUXIMAB [Suspect]
     Active Substance: RITUXIMAB
     Dates: start: 20161201, end: 20170201
  6. RITUXIMAB [Suspect]
     Active Substance: RITUXIMAB
     Dates: start: 20200116, end: 20200618
  7. RITUXIMAB [Suspect]
     Active Substance: RITUXIMAB
     Dates: start: 20220420, end: 20220818
  8. BENDAMUSTINE [Suspect]
     Active Substance: BENDAMUSTINE
     Indication: Diffuse large B-cell lymphoma
     Dates: start: 20220420, end: 20220818

REACTIONS (3)
  - Malignant neoplasm progression [Unknown]
  - Off label use [Unknown]
  - Cytokine release syndrome [Unknown]
